FAERS Safety Report 8420276-3 (Version None)
Quarter: 2012Q2

REPORT INFORMATION
  Report Type: 
  Country: None (occurrence: None)
  Receive Date: 20120607
  Receipt Date: 20120525
  Transmission Date: 20120825
  Serious: No
  Sender: FDA-Public Use
  Company Number: US-ASTRAZENECA-2012SE34143

PATIENT
  Age: 51 Year
  Sex: Female
  Weight: 90.7 kg

DRUGS (5)
  1. TOPROL-XL [Suspect]
     Indication: BLOOD PRESSURE ABNORMAL
     Route: 048
     Dates: start: 19980101
  2. TOPROL-XL [Suspect]
     Route: 048
  3. VITAMIN TAB [Concomitant]
  4. TOPROL-XL [Suspect]
     Indication: CARDIAC DISORDER
     Route: 048
     Dates: start: 19980101
  5. TOPROL-XL [Suspect]
     Route: 048

REACTIONS (7)
  - BLOOD PRESSURE INCREASED [None]
  - DRUG DOSE OMISSION [None]
  - DIZZINESS [None]
  - MIGRAINE [None]
  - FEELING ABNORMAL [None]
  - ABDOMINAL DISCOMFORT [None]
  - HEADACHE [None]
